FAERS Safety Report 10715928 (Version 4)
Quarter: 2016Q3

REPORT INFORMATION
  Report Type: Spontaneous
  Country: US (occurrence: US)
  Receive Date: 20150116
  Receipt Date: 20160801
  Transmission Date: 20161109
  Serious: No
  Sender: FDA-Public Use
  Company Number: US-PFIZER INC-2015015912

PATIENT
  Age: 67 Year
  Sex: Female

DRUGS (15)
  1. ASPIRIN. [Suspect]
     Active Substance: ASPIRIN
     Dosage: UNK
  2. VICOPROFEN [Suspect]
     Active Substance: HYDROCODONE BITARTRATE\IBUPROFEN
     Dosage: UNK
  3. MOBIC [Suspect]
     Active Substance: MELOXICAM
     Dosage: UNK
  4. SINGULAIR [Suspect]
     Active Substance: MONTELUKAST SODIUM
     Dosage: UNK
  5. FELDENE [Suspect]
     Active Substance: PIROXICAM
     Dosage: UNK
  6. DAYPRO [Suspect]
     Active Substance: OXAPROZIN
     Dosage: UNK
  7. NAPROXEN SODIUM. [Suspect]
     Active Substance: NAPROXEN SODIUM
     Dosage: UNK
  8. ETODOLAC. [Suspect]
     Active Substance: ETODOLAC
     Dosage: UNK
  9. INDOMETHACIN. [Suspect]
     Active Substance: INDOMETHACIN
     Dosage: UNK
  10. IBUPROFEN. [Suspect]
     Active Substance: IBUPROFEN
     Dosage: UNK
  11. KETOPROFEN. [Suspect]
     Active Substance: KETOPROFEN
     Dosage: UNK
  12. PEPTO-BISMOL [Suspect]
     Active Substance: BISMUTH SUBSALICYLATE
     Dosage: UNK
  13. CELEBREX [Suspect]
     Active Substance: CELECOXIB
     Dosage: UNK
  14. DICLOFENAC SODIUM. [Suspect]
     Active Substance: DICLOFENAC SODIUM
     Dosage: UNK
  15. RELAFEN [Suspect]
     Active Substance: NABUMETONE
     Dosage: UNK

REACTIONS (2)
  - Drug hypersensitivity [Unknown]
  - Drug intolerance [Unknown]
